FAERS Safety Report 16513568 (Version 1)
Quarter: 2019Q3

REPORT INFORMATION
  Report Type: Report from Study
  Country: US (occurrence: US)
  Receive Date: 20190701
  Receipt Date: 20190701
  Transmission Date: 20191004
  Serious: Yes (Hospitalization)
  Sender: FDA-Public Use
  Company Number: US-ACTELION-A-US2019-192339

PATIENT
  Sex: Male

DRUGS (4)
  1. PROAIR HFA [Concomitant]
     Active Substance: ALBUTEROL SULFATE
     Dosage: 1 DF, PRN
     Dates: start: 20160802
  2. FLOVENT [Concomitant]
     Active Substance: FLUTICASONE PROPIONATE
     Dosage: 1 DF, PRN
     Dates: start: 20160802
  3. LUMIZYME [Concomitant]
     Active Substance: ALGLUCOSIDASE ALFA
     Dosage: 250 MG, Q1WEEK
     Dates: start: 20160802
  4. ZAVESCA [Suspect]
     Active Substance: MIGLUSTAT
     Indication: GLYCOGEN STORAGE DISEASE TYPE II
     Dosage: 100 MG, Q14D PTI
     Route: 048
     Dates: start: 20180710

REACTIONS (2)
  - Pneumonia [Unknown]
  - Product use issue [Unknown]
